FAERS Safety Report 7031121-5 (Version None)
Quarter: 2010Q4

REPORT INFORMATION
  Report Type: 
  Country: None (occurrence: None)
  Receive Date: 20101006
  Receipt Date: 20100923
  Transmission Date: 20110411
  Serious: Yes (Other)
  Sender: FDA-Public Use
  Company Number: CA-ELI_LILLY_AND_COMPANY-CA201008005902

PATIENT
  Sex: Female
  Weight: 58 kg

DRUGS (8)
  1. ADCIRCA [Suspect]
     Indication: PULMONARY ARTERIAL HYPERTENSION
     Dosage: 40 MG, DAILY (1/D)
     Route: 048
     Dates: start: 20100707, end: 20100710
  2. REVATIO [Concomitant]
  3. COUMADIN [Concomitant]
     Indication: EMBOLISM ARTERIAL
  4. ZANTAC [Concomitant]
     Dosage: 150 MG, DAILY (1/D)
  5. BISOPROLOL [Concomitant]
  6. ALLOPURINOL [Concomitant]
  7. ASPIRIN [Concomitant]
     Dosage: 81 MG, DAILY (1/D)
  8. AVAPRO [Concomitant]
     Dosage: 150 MG, DAILY (1/D)

REACTIONS (15)
  - ARTHRALGIA [None]
  - BLOOD PRESSURE INCREASED [None]
  - BLOOD URIC ACID INCREASED [None]
  - CHEST PAIN [None]
  - COUGH [None]
  - DYSPNOEA [None]
  - FATIGUE [None]
  - HAEMOGLOBIN INCREASED [None]
  - INSOMNIA [None]
  - MYOCARDIAL INFARCTION [None]
  - OEDEMA [None]
  - ORTHOPNOEA [None]
  - PAIN [None]
  - PALPITATIONS [None]
  - SERUM FERRITIN INCREASED [None]
